FAERS Safety Report 5134059-3 (Version None)
Quarter: 2006Q4

REPORT INFORMATION
  Report Type: 
  Country: None (occurrence: None)
  Receive Date: 20061019
  Receipt Date: 20061003
  Transmission Date: 20070319
  Serious: Yes (Death)
  Sender: FDA-Public Use
  Company Number: 6024855

PATIENT
  Age: 56 Year
  Sex: Male

DRUGS (13)
  1. METFORMIN QUALIMED 850 MG (850 MG, FILM-COATED TABLET) (METFORMIN) [Suspect]
     Indication: DIABETES MELLITUS NON-INSULIN-DEPENDENT
     Dosage: 1700 MG (850 MG, 2 IN 1 D) ORAL; SEE IMAGE
     Route: 048
     Dates: start: 20060217, end: 20060324
  2. METFORMIN QUALIMED 850 MG (850 MG, FILM-COATED TABLET) (METFORMIN) [Suspect]
     Indication: DIABETES MELLITUS NON-INSULIN-DEPENDENT
     Dosage: 1700 MG (850 MG, 2 IN 1 D) ORAL; SEE IMAGE
     Route: 048
     Dates: start: 20060324, end: 20060424
  3. METFORMIN QUALIMED 850 MG (850 MG, FILM-COATED TABLET) (METFORMIN) [Suspect]
     Indication: DIABETES MELLITUS NON-INSULIN-DEPENDENT
     Dosage: 1700 MG (850 MG, 2 IN 1 D) ORAL; SEE IMAGE
     Route: 048
     Dates: start: 20060424, end: 20060424
  4. AMOXICILLIN + CLAVULANIC ACID (AMOXICILLIN, CLAVULANIC ACID) [Concomitant]
  5. CARBOCISTEINE (CARBOCISTEINE) [Concomitant]
  6. PIROXICAM [Concomitant]
  7. BROMAZEPAM (TABLET) (BROMAZEPAM) [Concomitant]
  8. IBUPROFEN [Concomitant]
  9. DIAMICRON (GLICLAZIDE) [Concomitant]
  10. FORLAX (MACROGOL) [Concomitant]
  11. NORMACOL (RECTAL SOLUTION) [Concomitant]
  12. PIVALONE (TIXOCORTOL) [Concomitant]
  13. DIALGIREX (PARACETAMOL, DEXTROPROPOXYPHENE HYDROCHLORIDE) [Concomitant]

REACTIONS (9)
  - CONDITION AGGRAVATED [None]
  - CONSTIPATION [None]
  - COUGH [None]
  - HEPATIC NEOPLASM MALIGNANT [None]
  - LACTIC ACIDOSIS [None]
  - LIVER DISORDER [None]
  - REFUSAL OF TREATMENT BY RELATIVE [None]
  - TRANSAMINASES INCREASED [None]
  - UPPER GASTROINTESTINAL HAEMORRHAGE [None]
